FAERS Safety Report 9303826 (Version 3)
Quarter: 2013Q4

REPORT INFORMATION
  Report Type: Spontaneous
  Country: FR (occurrence: FR)
  Receive Date: 20130522
  Receipt Date: 20131101
  Transmission Date: 20140711
  Serious: Yes (Hospitalization)
  Sender: FDA-Public Use
  Company Number: FR-VIIV HEALTHCARE LIMITED-B0893355A

PATIENT
  Age: 44 Year
  Sex: Male

DRUGS (8)
  1. KIVEXA [Suspect]
     Indication: HIV INFECTION
     Route: 048
     Dates: start: 2011, end: 20130413
  2. ACICLOVIR [Suspect]
     Indication: ENCEPHALOPATHY
     Route: 065
     Dates: start: 20130414, end: 20130416
  3. BACTRIM FORTE [Suspect]
     Indication: PROPHYLAXIS
     Dosage: 1TAB PER DAY
     Route: 048
     Dates: start: 20130413, end: 20130424
  4. CEFTRIAXONE [Suspect]
     Indication: ENCEPHALOPATHY
     Route: 065
     Dates: start: 20130414, end: 20130416
  5. INEXIUM [Suspect]
     Indication: PROPHYLAXIS AGAINST GASTROINTESTINAL ULCER
     Route: 065
     Dates: start: 20130413, end: 20130417
  6. KALETRA [Suspect]
     Indication: HIV INFECTION
     Route: 048
     Dates: start: 2011, end: 20130413
  7. METHADONE [Concomitant]
  8. HEROIN [Concomitant]

REACTIONS (1)
  - Neutropenia [Recovered/Resolved]
